FAERS Safety Report 13210627 (Version 1)
Quarter: 2017Q1

REPORT INFORMATION
  Report Type: Spontaneous
  Country: US (occurrence: US)
  Receive Date: 20170209
  Receipt Date: 20170209
  Transmission Date: 20170428
  Serious: Yes (Other)
  Sender: FDA-Public Use
  Company Number: None

PATIENT
  Age: 38 Year
  Sex: Female
  Weight: 72 kg

DRUGS (2)
  1. DEPLIN [Suspect]
     Active Substance: LEVOMEFOLATE CALCIUM
     Indication: DRUG LEVEL DECREASED
  2. LITHIUM. [Suspect]
     Active Substance: LITHIUM
     Indication: DRUG LEVEL DECREASED

REACTIONS (3)
  - Product substitution issue [None]
  - Drug level decreased [None]
  - Drug interaction [None]

NARRATIVE: CASE EVENT DATE: 20170207
